FAERS Safety Report 12449362 (Version 3)
Quarter: 2016Q3

REPORT INFORMATION
  Report Type: Spontaneous
  Country: KR (occurrence: KR)
  Receive Date: 20160608
  Receipt Date: 20160928
  Transmission Date: 20161109
  Serious: Yes (Hospitalization, Other)
  Sender: FDA-Public Use
  Company Number: KR-AMGEN-KORSP2016072891

PATIENT
  Age: 60 Year
  Sex: Female

DRUGS (16)
  1. PALONOSETRON [Suspect]
     Active Substance: PALONOSETRON
     Indication: DIFFUSE LARGE B-CELL LYMPHOMA
     Dosage: 0.25 MG, UNK
     Route: 042
     Dates: start: 20160405, end: 20160405
  2. RITUXIMAB [Suspect]
     Active Substance: RITUXIMAB
     Dosage: 1400 MG, CYCLE 2 DAY 1
     Route: 058
     Dates: start: 20160426, end: 20160426
  3. METHYLPREDNISOLONE. [Concomitant]
     Active Substance: METHYLPREDNISOLONE
     Dosage: MOST RECENT DOSE TAKEN PRIOR TO SAE: 31/MAY/2016 (4 MG,1 IN 1 D)
     Route: 048
     Dates: start: 20150731
  4. PEGFILGRASTIM [Suspect]
     Active Substance: PEGFILGRASTIM
     Dosage: 6 MG, UNK
     Route: 058
     Dates: start: 20160428, end: 20160428
  5. PEGFILGRASTIM [Suspect]
     Active Substance: PEGFILGRASTIM
     Dosage: 6 MG, UNK
     Route: 058
     Dates: start: 20160519, end: 20160519
  6. RITUXIMAB [Suspect]
     Active Substance: RITUXIMAB
     Indication: DIFFUSE LARGE B-CELL LYMPHOMA
     Dosage: 560 MG, SINGLE DOSE (CYCLE 1 DAY 1)
     Route: 042
     Dates: start: 20160404
  7. RITUXIMAB [Suspect]
     Active Substance: RITUXIMAB
     Dosage: 1400 MG, CYCLE 3 DAY 1
     Route: 058
     Dates: start: 20160517, end: 20160517
  8. PALONOSETRON [Suspect]
     Active Substance: PALONOSETRON
     Dosage: 0.25 MG, UNK
     Route: 042
     Dates: start: 20160426, end: 20160426
  9. PALONOSETRON [Suspect]
     Active Substance: PALONOSETRON
     Dosage: 0.25 MG, UNK (CYCLE 3 DAY 1)
     Route: 042
     Dates: start: 20160517, end: 20160517
  10. PEGFILGRASTIM [Suspect]
     Active Substance: PEGFILGRASTIM
     Indication: DIFFUSE LARGE B-CELL LYMPHOMA
     Dosage: 6 MG, UNK
     Route: 058
     Dates: start: 20160407, end: 20160407
  11. BENDAMUSTINE [Suspect]
     Active Substance: BENDAMUSTINE
     Indication: DIFFUSE LARGE B-CELL LYMPHOMA
     Dosage: 180 MG ON C1D1, C1D2, C2D1 26/APR/2016 AND C2D2 27/APR/2016, C3D1 ON 17/MAY/2016, C2D3 ON18/MAY/2016
     Route: 042
     Dates: start: 20160405, end: 20160406
  12. PRAVASTATIN SODIUM. [Concomitant]
     Active Substance: PRAVASTATIN SODIUM
     Dosage: MOST RECENT DOSE TAKEN PRIOR TO SAE: 31/MAY/2016 (10 MG, 1 IN 1 D)
     Route: 048
     Dates: start: 20150723
  13. BISOPROLOL [Concomitant]
     Active Substance: BISOPROLOL
     Dosage: MOST RECENT DOSE TAKEN PRIOR TO SAE: 31/MAY/2016 (1.25 MG,1 IN 1 D)
     Route: 048
     Dates: start: 20140707
  14. TORASEMIDE [Concomitant]
     Active Substance: TORSEMIDE
     Dosage: MOST RECENT DOSE TAKEN PRIOR TO SAE: 31/MAY/2016 (5 MG,1 IN 1 D)
     Route: 065
     Dates: start: 20150917
  15. SEPTRIN [Concomitant]
     Active Substance: SULFAMETHOXAZOLE\TRIMETHOPRIM
     Dosage: MOST RECENT DOSE TAKEN PRIOR TO SAE: 31/MAY/2016 (1 DF,1 IN 1 D)
     Route: 048
     Dates: start: 20140609
  16. TACROLIMUS. [Concomitant]
     Active Substance: TACROLIMUS
     Dosage: 1 MG, BID (2 IN 1 D)
     Route: 048
     Dates: start: 20150710

REACTIONS (1)
  - Cytomegalovirus infection [Recovered/Resolved]

NARRATIVE: CASE EVENT DATE: 20160531
